FAERS Safety Report 24221575 (Version 1)
Quarter: 2024Q3

REPORT INFORMATION
  Report Type: Spontaneous
  Country: IE (occurrence: IE)
  Receive Date: 20240819
  Receipt Date: 20240819
  Transmission Date: 20241017
  Serious: Yes (Hospitalization, Other)
  Sender: BOEHRINGER INGELHEIM
  Company Number: IE-BoehringerIngelheim-2024-BI-045079

PATIENT
  Age: 54 Year
  Sex: Female

DRUGS (8)
  1. EMPAGLIFLOZIN [Suspect]
     Active Substance: EMPAGLIFLOZIN
     Indication: Type 2 diabetes mellitus
     Route: 048
  2. PROBENECID [Suspect]
     Active Substance: PROBENECID
     Indication: Antibiotic therapy
     Route: 048
  3. ENOXAPARIN [Concomitant]
     Active Substance: ENOXAPARIN
     Indication: Product used for unknown indication
     Route: 058
  4. METFORMIN [Concomitant]
     Active Substance: METFORMIN HYDROCHLORIDE
     Indication: Product used for unknown indication
     Route: 048
  5. GLICLAZIDE [Concomitant]
     Active Substance: GLICLAZIDE
     Indication: Product used for unknown indication
     Dosage: MODIFIED RELEASE
     Route: 048
  6. LINAGLIPTIN [Concomitant]
     Active Substance: LINAGLIPTIN
     Indication: Product used for unknown indication
     Route: 048
  7. CEFAZOLIN [Concomitant]
     Active Substance: CEFAZOLIN
     Indication: Antibiotic therapy
     Route: 042
  8. APIXABAN [Concomitant]
     Active Substance: APIXABAN
     Indication: Product used for unknown indication
     Route: 048

REACTIONS (8)
  - Diabetic ketoacidosis [Recovered/Resolved]
  - Deep vein thrombosis [Unknown]
  - Squamous cell carcinoma [Unknown]
  - Vulval cancer [Unknown]
  - Metastases to bone [Unknown]
  - Lymphadenopathy [Unknown]
  - Vaginal haemorrhage [Unknown]
  - Bacteraemia [Recovering/Resolving]
